FAERS Safety Report 16505260 (Version 1)
Quarter: 2019Q3

REPORT INFORMATION
  Report Type: Spontaneous
  Country: US (occurrence: US)
  Receive Date: 20190701
  Receipt Date: 20190701
  Transmission Date: 20191004
  Serious: Yes (Other)
  Sender: FDA-Public Use
  Company Number: US-BAYER-2019-105218

PATIENT
  Age: 83 Year
  Sex: Male
  Weight: 101 kg

DRUGS (3)
  1. NEO-SYNEPHRINE COLD AND SINUS MILD STRENGTH [Suspect]
     Active Substance: PHENYLEPHRINE HYDROCHLORIDE
     Dosage: UNK
  2. AFRIN ORIGINAL [Suspect]
     Active Substance: OXYMETAZOLINE HYDROCHLORIDE
     Indication: ALLERGIC RESPIRATORY SYMPTOM
     Dosage: 1 DF, Q3WK
     Route: 055
     Dates: start: 2009
  3. AFRIN ORIGINAL [Suspect]
     Active Substance: OXYMETAZOLINE HYDROCHLORIDE
     Indication: NASOPHARYNGITIS

REACTIONS (4)
  - Drug dependence [None]
  - Cholelithiasis [Unknown]
  - Incorrect product administration duration [None]
  - Product closure removal difficult [Unknown]

NARRATIVE: CASE EVENT DATE: 2009
